FAERS Safety Report 7717775-6 (Version None)
Quarter: 2011Q3

REPORT INFORMATION
  Report Type: 
  Country: None (occurrence: None)
  Receive Date: 20110830
  Receipt Date: 20110825
  Transmission Date: 20111222
  Serious: Yes (Life-Threatening, Hospitalization)
  Sender: FDA-Public Use
  Company Number: DE-SANOFI-AVENTIS-2011SA054350

PATIENT
  Sex: Male
  Weight: 91 kg

DRUGS (10)
  1. METFORMIN HYDROCHLORIDE [Concomitant]
     Route: 065
  2. PANTOPRAZOLE [Concomitant]
     Route: 065
  3. ASPIRIN [Concomitant]
     Route: 065
  4. EZETIMIBE [Concomitant]
     Route: 065
  5. VITAMIN B-12 [Concomitant]
     Indication: VITAMIN B12 DEFICIENCY
     Dosage: DAILY DOSE: 1 DF DOSAGE FORM EVERY 4 WEEK
     Route: 058
  6. ANTIHYPERTENSIVES [Concomitant]
     Route: 065
  7. METOPROLOL TARTRATE [Concomitant]
     Route: 065
  8. FOLIC ACID [Concomitant]
     Route: 065
  9. FERRLECIT [Suspect]
     Indication: ANAEMIA
     Route: 042
     Dates: start: 20110816
  10. CARBAMAZEPINE [Concomitant]
     Route: 065

REACTIONS (8)
  - HEADACHE [None]
  - CIRCULATORY COLLAPSE [None]
  - BLOOD PRESSURE INCREASED [None]
  - ALTERED STATE OF CONSCIOUSNESS [None]
  - TACHYCARDIA [None]
  - MUSCLE SPASMS [None]
  - CEREBRAL INFARCTION [None]
  - ANXIETY [None]
